FAERS Safety Report 22525733 (Version 1)
Quarter: 2023Q2

REPORT INFORMATION
  Report Type: Other
  Country: None (occurrence: US)
  Receive Date: 20230606
  Receipt Date: 20230606
  Transmission Date: 20230722
  Serious: Yes (Hospitalization, Other)
  Sender: FDA-Public Use
  Company Number: US-Appco Pharma LLC-2142373

PATIENT
  Age: 48 Year
  Sex: Male

DRUGS (2)
  1. FLUOXETINE [Suspect]
     Active Substance: FLUOXETINE HYDROCHLORIDE
     Indication: Bipolar disorder
     Route: 065
  2. CARVEDILOL [Interacting]
     Active Substance: CARVEDILOL
     Route: 065

REACTIONS (7)
  - Unresponsive to stimuli [Unknown]
  - Hypotension [Recovered/Resolved]
  - Sinus bradycardia [Recovered/Resolved]
  - Metabolic acidosis [Unknown]
  - Drug-genetic interaction [Unknown]
  - Toxicity to various agents [Unknown]
  - Drug interaction [Unknown]
